FAERS Safety Report 14475428 (Version 3)
Quarter: 2018Q2

REPORT INFORMATION
  Report Type: Spontaneous
  Country: NL (occurrence: NL)
  Receive Date: 20180201
  Receipt Date: 20180516
  Transmission Date: 20180711
  Serious: Yes (Hospitalization, Other)
  Sender: FDA-Public Use
  Company Number: NL-BRISTOL-MYERS SQUIBB COMPANY-BMS-2018-004169

PATIENT
  Age: 73 Year
  Sex: Male

DRUGS (1)
  1. OPDIVO [Suspect]
     Active Substance: NIVOLUMAB
     Indication: COLON CANCER
     Dosage: 3 MG/KG, Q2WK
     Route: 042
     Dates: start: 20180103

REACTIONS (8)
  - Large intestinal obstruction [Unknown]
  - Abdominal pain upper [Recovering/Resolving]
  - Product use in unapproved indication [Unknown]
  - Leukocytosis [Unknown]
  - Malignant neoplasm progression [Unknown]
  - Small intestinal obstruction [Unknown]
  - Inflammation [Unknown]
  - Diarrhoea [Recovering/Resolving]

NARRATIVE: CASE EVENT DATE: 201801
